FAERS Safety Report 23646918 (Version 1)
Quarter: 2024Q1

REPORT INFORMATION
  Report Type: Spontaneous
  Country: FR (occurrence: None)
  Receive Date: 20240319
  Receipt Date: 20240319
  Transmission Date: 20240409
  Serious: Yes (Other)
  Sender: FDA-Public Use
  Company Number: FR-Orion Corporation ORION PHARMA-ENT 2009-0174

PATIENT
  Age: 50 Year
  Sex: Male

DRUGS (9)
  1. ENTACAPONE [Suspect]
     Active Substance: ENTACAPONE
     Indication: Parkinson^s disease
  2. LEVODOPA [Suspect]
     Active Substance: LEVODOPA
     Indication: Parkinson^s disease
  3. BENSERAZIDE [Suspect]
     Active Substance: BENSERAZIDE
     Indication: Parkinson^s disease
  4. CARBIDOPA [Suspect]
     Active Substance: CARBIDOPA
     Indication: Parkinson^s disease
  5. BROMOCRIPTINE [Suspect]
     Active Substance: BROMOCRIPTINE
     Indication: Parkinson^s disease
  6. BROMOCRIPTINE [Suspect]
     Active Substance: BROMOCRIPTINE
     Dosage: REDUCED DOSE
  7. TOLCAPONE [Suspect]
     Active Substance: TOLCAPONE
     Indication: Parkinson^s disease
  8. PERGOLIDE [Suspect]
     Active Substance: PERGOLIDE
     Indication: Parkinson^s disease
     Dates: end: 200511
  9. PIRIBEDIL [Suspect]
     Active Substance: PIRIBEDIL
     Indication: Parkinson^s disease
     Dates: start: 200511

REACTIONS (3)
  - Drug abuse [Recovered/Resolved]
  - Dopamine dysregulation syndrome [Recovered/Resolved]
  - Gambling disorder [Recovered/Resolved]

NARRATIVE: CASE EVENT DATE: 20060401
